FAERS Safety Report 8424276-9 (Version None)
Quarter: 2012Q2

REPORT INFORMATION
  Report Type: 
  Country: None (occurrence: None)
  Receive Date: 20120608
  Receipt Date: 20111227
  Transmission Date: 20120825
  Serious: No
  Sender: FDA-Public Use
  Company Number: US-ASTRAZENECA-2011SE78369

PATIENT
  Age: 7 Year
  Sex: Female

DRUGS (2)
  1. PULMICORT [Suspect]
     Indication: ASTHMA
     Dosage: 0.5 MG PER 2 ML, UNKNOWN
     Route: 055
  2. ALBUTEROL [Concomitant]

REACTIONS (2)
  - EXPIRED DRUG ADMINISTERED [None]
  - PNEUMONIA [None]
